FAERS Safety Report 6765386-1 (Version None)
Quarter: 2010Q2

REPORT INFORMATION
  Report Type: 
  Country: None (occurrence: None)
  Receive Date: 20100611
  Receipt Date: 20100528
  Transmission Date: 20101027
  Serious: Yes (Other)
  Sender: FDA-Public Use
  Company Number: NO-RANBAXY-2010RR-34411

PATIENT
  Age: 29 Year
  Sex: Male

DRUGS (1)
  1. RANITIDINE [Suspect]

REACTIONS (3)
  - HYPERSENSITIVITY [None]
  - JAUNDICE [None]
  - PRURITUS [None]
